FAERS Safety Report 9540588 (Version 2)
Quarter: 2013Q4

REPORT INFORMATION
  Report Type: Spontaneous
  Country: US (occurrence: US)
  Receive Date: 20130920
  Receipt Date: 20131004
  Transmission Date: 20140711
  Serious: No
  Sender: FDA-Public Use
  Company Number: US-PFIZER INC-2013270339

PATIENT
  Age: 69 Year
  Sex: Female
  Weight: 53.06 kg

DRUGS (11)
  1. NEURONTIN [Suspect]
     Indication: INTERVERTEBRAL DISC PROTRUSION
     Dosage: 300 MG, 2X/DAY
  2. NEURONTIN [Suspect]
     Indication: BACK PAIN
     Dosage: 300 MG, 1X/DAY
     Dates: start: 2013
  3. NEURONTIN [Suspect]
     Dosage: 300 MG, 2X/DAY
     Dates: start: 2013
  4. LYRICA [Suspect]
     Indication: INTERVERTEBRAL DISC PROTRUSION
     Dosage: UNK
     Dates: end: 2013
  5. LYRICA [Suspect]
     Indication: BACK PAIN
  6. AMITRIPTYLINE [Concomitant]
     Dosage: 25 MG, 1X/DAY
  7. METOPROLOL [Concomitant]
     Indication: HYPERTENSION
     Dosage: 50 MG, 2X/DAY
  8. FENTANYL [Concomitant]
     Indication: PAIN
     Dosage: UNK
  9. MORPHINE [Concomitant]
     Indication: PAIN
     Dosage: 15 MG, AS NEEDED
  10. VICODIN [Concomitant]
     Indication: PAIN
     Dosage: HYDROCODONE 7.5 MG/ACETAMINOPHEN 500 MG, AS NEEDED
  11. ATORVASTATIN [Concomitant]
     Dosage: 40 MG, 1X/DAY

REACTIONS (11)
  - Fatigue [Recovered/Resolved]
  - Body height decreased [Unknown]
  - Hypersomnia [Unknown]
  - Off label use [Unknown]
  - Intelligence increased [Unknown]
  - Therapeutic response unexpected [Unknown]
  - Asthenia [Recovered/Resolved]
  - Balance disorder [Unknown]
  - Disorientation [Recovered/Resolved]
  - Dizziness [Recovered/Resolved]
  - Muscular weakness [Recovered/Resolved]
